FAERS Safety Report 8611862 (Version 5)
Quarter: 2014Q2

REPORT INFORMATION
  Report Type: Report from Study
  Country: ES (occurrence: ES)
  Receive Date: 20120613
  Receipt Date: 20140604
  Transmission Date: 20141212
  Serious: Yes (Death, Hospitalization)
  Sender: FDA-Public Use
  Company Number: ES-CELGENEUS-144-21880-12053583

PATIENT
  Age: 75 Year
  Sex: Male
  Weight: 63.8 kg

DRUGS (17)
  1. BLINDED REVLIMID [Suspect]
     Indication: DIFFUSE LARGE B-CELL LYMPHOMA
     Route: 048
     Dates: start: 20110413, end: 20110707
  2. BLINDED REVLIMID [Suspect]
     Dosage: 20 MILLIGRAM
     Route: 048
     Dates: start: 20110714
  3. BLINDED REVLIMID [Suspect]
     Dosage: 20 MILLIGRAM
     Route: 048
     Dates: start: 20111201, end: 20111222
  4. ENALAPRIL [Concomitant]
     Indication: HYPERTENSION
     Route: 065
     Dates: start: 20110715
  5. INDAPAMID [Concomitant]
     Indication: HYPERTENSION
     Route: 065
     Dates: start: 20110915, end: 20120420
  6. ASPIRINE [Concomitant]
     Indication: THROMBOSIS PROPHYLAXIS
     Route: 048
     Dates: start: 20110413, end: 20111229
  7. CYCLOSPORIN [Concomitant]
     Indication: PRODUCT USED FOR UNKNOWN INDICATION
     Route: 065
  8. CYCLOSPORIN [Concomitant]
     Dosage: 200 MILLIGRAM
     Route: 065
  9. OMEPRAZOLE [Concomitant]
     Indication: PRODUCT USED FOR UNKNOWN INDICATION
     Route: 065
  10. ACFOL [Concomitant]
     Indication: PRODUCT USED FOR UNKNOWN INDICATION
     Dosage: 10 MILLIGRAM
     Route: 065
  11. AMLODIPINE [Concomitant]
     Indication: PRODUCT USED FOR UNKNOWN INDICATION
     Dosage: 10 MILLIGRAM
     Route: 065
  12. DACORTIN [Concomitant]
     Indication: PRODUCT USED FOR UNKNOWN INDICATION
     Route: 065
  13. MAGNESIOBOI [Concomitant]
     Indication: PRODUCT USED FOR UNKNOWN INDICATION
     Route: 065
  14. MAGNESIOBOI [Concomitant]
     Dosage: 200 MILLIGRAM
     Route: 065
  15. MAYGACE [Concomitant]
     Indication: PRODUCT USED FOR UNKNOWN INDICATION
     Route: 065
  16. MAYGACE [Concomitant]
     Dosage: 200 MILLIGRAM
     Route: 065
  17. MAYGACE [Concomitant]
     Dosage: 5 MILLILITER
     Route: 065

REACTIONS (2)
  - Pseudomonal sepsis [Fatal]
  - Bone marrow failure [Not Recovered/Not Resolved]
